FAERS Safety Report 5765959-9 (Version None)
Quarter: 2008Q2

REPORT INFORMATION
  Report Type: 
  Country: None (occurrence: None)
  Receive Date: 20080611
  Receipt Date: 20080118
  Transmission Date: 20081010
  Serious: Yes (Hospitalization, Disabling)
  Sender: FDA-Public Use
  Company Number: US-BRISTOL-MYERS SQUIBB COMPANY-14056006

PATIENT
  Age: 66 Year
  Sex: Male

DRUGS (9)
  1. CARBIDOPA + LEVODOPA [Suspect]
     Indication: PARKINSON'S DISEASE
     Route: 048
  2. CARBIDOPA + LEVODOPA CR TABS 50/200MG [Suspect]
     Dosage: 1 DOSAGE FORM = 50/200MG
     Route: 048
  3. PERGOLIDE MESYLATE [Suspect]
  4. ELDEPRYL [Suspect]
  5. CLOZAPINE [Suspect]
  6. FLUOXETINE HCL [Concomitant]
  7. NIFEDIPINE [Concomitant]
  8. PILOCARPINE [Concomitant]
  9. TIMOLOL MALEATE [Concomitant]

REACTIONS (3)
  - ADVERSE EVENT [None]
  - DRUG EFFECT DECREASED [None]
  - DYSKINESIA [None]
